FAERS Safety Report 10209473 (Version 1)
Quarter: 2014Q2

REPORT INFORMATION
  Report Type: Spontaneous
  Country: GB (occurrence: GB)
  Receive Date: 20140601
  Receipt Date: 20140601
  Transmission Date: 20141212
  Serious: Yes (Hospitalization)
  Sender: FDA-Public Use
  Company Number: GB-JNJFOC-20140516875

PATIENT
  Age: 85 Year
  Sex: Male
  Weight: 77 kg

DRUGS (5)
  1. XARELTO [Suspect]
     Indication: PRODUCT USED FOR UNKNOWN INDICATION
     Route: 048
  2. WARFARIN SODIUM [Concomitant]
     Route: 065
     Dates: start: 20140120, end: 20140421
  3. FUROSEMIDE [Concomitant]
     Route: 065
     Dates: start: 20140120, end: 20140421
  4. BISOPROLOL [Concomitant]
     Route: 065
     Dates: start: 20140120, end: 20140421
  5. EZETIMIBE [Concomitant]
     Route: 065
     Dates: start: 20140120, end: 20140421

REACTIONS (3)
  - Liver function test abnormal [Recovered/Resolved]
  - Jaundice [Recovered/Resolved]
  - Malaise [Recovered/Resolved]
